FAERS Safety Report 7205371-9 (Version None)
Quarter: 2010Q4

REPORT INFORMATION
  Report Type: 
  Country: None (occurrence: None)
  Receive Date: 20101231
  Receipt Date: 20101222
  Transmission Date: 20110411
  Serious: Yes (Hospitalization)
  Sender: FDA-Public Use
  Company Number: US-US-EMD SERONO, INC.-7033149

PATIENT
  Sex: Female

DRUGS (4)
  1. REBIF [Suspect]
     Indication: MULTIPLE SCLEROSIS
     Route: 058
     Dates: start: 20090922
  2. BACLOFEN [Concomitant]
  3. AMITRYPTILINE [Concomitant]
     Indication: INSOMNIA
  4. OMEPRAZOLE [Concomitant]

REACTIONS (5)
  - BACK PAIN [None]
  - INJECTION SITE HAEMATOMA [None]
  - INTERVERTEBRAL DISC PROTRUSION [None]
  - MUSCLE SPASMS [None]
  - PAIN IN EXTREMITY [None]
